FAERS Safety Report 4288569-1 (Version None)
Quarter: 2004Q1

REPORT INFORMATION
  Report Type: 
  Country: None (occurrence: None)
  Receive Date: 20040204
  Receipt Date: 20040121
  Transmission Date: 20041129
  Serious: Yes (Disabling)
  Sender: FDA-Public Use
  Company Number: 200311561JP

PATIENT
  Age: 70 Year
  Sex: Female
  Weight: 64.1 kg

DRUGS (13)
  1. ARAVA [Suspect]
     Indication: RHEUMATOID ARTHRITIS
     Dosage: 100 MG/DAY PO
     Route: 048
     Dates: start: 20031104, end: 20031106
  2. ARAVA [Suspect]
     Indication: RHEUMATOID ARTHRITIS
     Dosage: 20 MG/DAY PO
     Route: 048
     Dates: start: 20031107, end: 20031221
  3. PREDONINE [Concomitant]
  4. LASIX [Concomitant]
  5. LOXOPROFEN [Concomitant]
  6. MUCOSTA [Concomitant]
  7. VITANEURIN [Concomitant]
  8. MAGNESIUM OXIDE [Concomitant]
  9. PL [Concomitant]
  10. SHAKUYAKUKANZOUTOU [Concomitant]
  11. VOLTAREN [Concomitant]
  12. AMLODIN [Concomitant]
  13. METHOTREXATE [Concomitant]

REACTIONS (6)
  - CONDITION AGGRAVATED [None]
  - HYPERTENSION [None]
  - INTERSTITIAL LUNG DISEASE [None]
  - PNEUMOCYSTIS CARINII INFECTION [None]
  - RESPIRATORY FAILURE [None]
  - SPUTUM CULTURE POSITIVE [None]
